FAERS Safety Report 24801717 (Version 1)
Quarter: 2025Q1

REPORT INFORMATION
  Report Type: Spontaneous
  Country: US (occurrence: US)
  Receive Date: 20250102
  Receipt Date: 20250102
  Transmission Date: 20250408
  Serious: No
  Sender: MERCK
  Company Number: US-009507513-2412USA001607

PATIENT
  Age: 62 Year
  Sex: Male

DRUGS (3)
  1. KEYTRUDA [Suspect]
     Active Substance: PEMBROLIZUMAB
     Indication: Hepatic mass
  2. CARBOPLATIN [Concomitant]
     Active Substance: CARBOPLATIN
     Indication: Hepatic mass
  3. PACLITAXEL [Concomitant]
     Active Substance: PACLITAXEL
     Indication: Hepatic mass

REACTIONS (1)
  - Product use in unapproved indication [Unknown]
